FAERS Safety Report 8207725-0 (Version None)
Quarter: 2012Q1

REPORT INFORMATION
  Report Type: 
  Country: None (occurrence: None)
  Receive Date: 20120314
  Receipt Date: 20120307
  Transmission Date: 20120608
  Serious: Yes (Death)
  Sender: FDA-Public Use
  Company Number: US-UCBSA-041692

PATIENT
  Age: 65 Year
  Sex: Female
  Weight: 44.4 kg

DRUGS (21)
  1. CIMZIA [Suspect]
     Indication: CROHN'S DISEASE
     Route: 058
     Dates: start: 20100318
  2. FUROSEMIDE [Concomitant]
     Dosage: 20 DAILY
  3. REMERON [Concomitant]
     Dosage: 15
  4. SILVADENE [Concomitant]
  5. MAGNESIUM HYDROXIDE TAB [Concomitant]
  6. CALCIUM AND VITAMIN D [Concomitant]
  7. CEPACOL [Concomitant]
  8. COREG [Concomitant]
     Dosage: 6.25
  9. CYMBALTA [Concomitant]
  10. NYSTATIN [Concomitant]
  11. ASACOL [Concomitant]
  12. ZINC SULFATE [Concomitant]
  13. LORTAB [Concomitant]
  14. CENTRUM [Concomitant]
     Dosage: DAILY
  15. AMLODIPINE [Concomitant]
  16. PRILOSEC [Concomitant]
     Dosage: 20 DAILY
  17. LOMOTIL [Concomitant]
     Dosage: 2 MG ONCE EVERY 8 HRS AS NECESSARY
  18. ARGINAID [Concomitant]
  19. CALCIUM [Concomitant]
  20. ASCORBIC ACID [Concomitant]
  21. DIGOXIN [Concomitant]
     Dosage: 0.125 DAILY

REACTIONS (7)
  - DEPRESSION [None]
  - CROHN'S DISEASE [None]
  - DEEP VEIN THROMBOSIS [None]
  - DECREASED APPETITE [None]
  - MALNUTRITION [None]
  - RESPIRATORY FAILURE [None]
  - PNEUMONIA [None]
